FAERS Safety Report 19955814 (Version 2)
Quarter: 2021Q4

REPORT INFORMATION
  Report Type: Report from Study
  Country: US (occurrence: None)
  Receive Date: 20211014
  Receipt Date: 20211111
  Transmission Date: 20220303
  Serious: Yes (Hospitalization)
  Sender: FDA-Public Use
  Company Number: 2021A761749

PATIENT
  Age: 76 Year
  Sex: Female

DRUGS (9)
  1. LUMOXITI [Suspect]
     Active Substance: MOXETUMOMAB PASUDOTOX-TDFK
     Indication: Hairy cell leukaemia
     Route: 042
     Dates: start: 20190909, end: 20190909
  2. LUMOXITI [Suspect]
     Active Substance: MOXETUMOMAB PASUDOTOX-TDFK
     Indication: Hairy cell leukaemia
     Route: 042
     Dates: start: 20190911, end: 20190911
  3. LUMOXITI [Suspect]
     Active Substance: MOXETUMOMAB PASUDOTOX-TDFK
     Indication: Hairy cell leukaemia
     Route: 042
     Dates: start: 20190913, end: 20190913
  4. ONDANSETRON [Concomitant]
     Active Substance: ONDANSETRON
  5. ALENDRONATE [Concomitant]
     Active Substance: ALENDRONATE SODIUM
     Indication: Bone disorder
  6. CALCIUM CARBONATE [Concomitant]
     Active Substance: CALCIUM CARBONATE
  7. VALACYCLOVIR [Concomitant]
     Active Substance: VALACYCLOVIR HYDROCHLORIDE
  8. GLIPIZIDE [Concomitant]
     Active Substance: GLIPIZIDE
     Indication: Bone disorder
  9. LINAGLIPTIN [Concomitant]
     Active Substance: LINAGLIPTIN
     Indication: Diabetes mellitus

REACTIONS (1)
  - Haemolytic uraemic syndrome [Recovered/Resolved]

NARRATIVE: CASE EVENT DATE: 20190916
